FAERS Safety Report 25875872 (Version 1)
Quarter: 2025Q4

REPORT INFORMATION
  Report Type: Spontaneous
  Country: JP (occurrence: JP)
  Receive Date: 20251003
  Receipt Date: 20251003
  Transmission Date: 20260117
  Serious: Yes (Other)
  Sender: DAIICHI
  Company Number: JP-DSJP-DS-2025-167690-JP

PATIENT
  Age: 51 Year
  Sex: Male
  Weight: 80 kg

DRUGS (3)
  1. VANFLYTA [Suspect]
     Active Substance: QUIZARTINIB DIHYDROCHLORIDE
     Indication: Acute myeloid leukaemia
     Dosage: 17.7 MG, BID
     Route: 048
     Dates: start: 20250808, end: 20250821
  2. VANFLYTA [Suspect]
     Active Substance: QUIZARTINIB DIHYDROCHLORIDE
     Dosage: 17.7 MG/DAY
     Route: 048
     Dates: start: 202508
  3. FEBUXOSTAT [Concomitant]
     Active Substance: FEBUXOSTAT
     Indication: Product used for unknown indication
     Dosage: UNK
     Route: 048
     Dates: start: 20250730, end: 20251001

REACTIONS (1)
  - Differentiation syndrome [Recovering/Resolving]

NARRATIVE: CASE EVENT DATE: 20250816
